FAERS Safety Report 4803974-X (Version None)
Quarter: 2005Q4

REPORT INFORMATION
  Report Type: 
  Country: None (occurrence: None)
  Receive Date: 20051019
  Receipt Date: 20051013
  Transmission Date: 20060501
  Serious: Yes (Hospitalization)
  Sender: FDA-Public Use
  Company Number: FR-SANOFI-SYNTHELABO-A02200502726

PATIENT
  Age: 65 Year
  Sex: Male

DRUGS (3)
  1. ELOXATIN [Suspect]
     Indication: RECTAL CANCER
     Route: 042
     Dates: start: 20050929, end: 20050929
  2. FLUOROURACIL [Suspect]
     Indication: RECTAL CANCER
     Route: 042
     Dates: start: 20050929, end: 20050929
  3. CALCIUM FOLINATE [Suspect]
     Indication: RECTAL CANCER
     Route: 042
     Dates: start: 20050929, end: 20050929

REACTIONS (1)
  - RENAL FAILURE ACUTE [None]
